FAERS Safety Report 8903758 (Version 1)
Quarter: 2012Q4

REPORT INFORMATION
  Report Type: 
  Country: FR (occurrence: FR)
  Receive Date: 20121113
  Receipt Date: 20121113
  Transmission Date: 20130627
  Serious: Yes (Death, Hospitalization)
  Sender: FDA-Public Use
  Company Number: FR-BAYER-2012-115800

PATIENT
  Age: 47 Year
  Sex: Male

DRUGS (7)
  1. NEXAVAR [Suspect]
     Indication: HAEMANGIOENDOTHELIOMA MALIGNANT
     Dosage: 200 mg, QID
     Route: 048
     Dates: start: 20120418, end: 20120808
  2. NEXAVAR [Suspect]
     Indication: HAEMANGIOENDOTHELIOMA MALIGNANT
     Dosage: UNK
     Dates: start: 201208
  3. METHADONE [Concomitant]
     Dosage: 120 mg, QD
     Route: 048
  4. LYRICA [Concomitant]
     Dosage: 600 mg, QD
     Route: 048
  5. LAROXYL [Concomitant]
     Dosage: 50 mg, QD
     Route: 048
  6. ACUPAN [Concomitant]
     Route: 042
  7. KETAMINE [Concomitant]
     Route: 048

REACTIONS (2)
  - Pulmonary interstitial emphysema syndrome [Fatal]
  - Musculoskeletal pain [Recovered/Resolved with Sequelae]
